FAERS Safety Report 14294071 (Version 1)
Quarter: 2017Q4

REPORT INFORMATION
  Report Type: Spontaneous
  Country: NO (occurrence: NO)
  Receive Date: 20171217
  Receipt Date: 20171217
  Transmission Date: 20180321
  Serious: Yes (Disabling, Other)
  Sender: FDA-Public Use
  Company Number: NO-CIPLA LTD.-2017NO25717

PATIENT

DRUGS (10)
  1. DIOVAN COMP [Concomitant]
     Active Substance: HYDROCHLOROTHIAZIDE\VALSARTAN
     Indication: HYPERTENSION
     Dosage: 1 DF = 12,5/320 MG
     Route: 048
  2. PARACET [Concomitant]
     Active Substance: ACETAMINOPHEN
     Dosage: 1G, 4X/DAY, 6 HOURS
     Route: 048
  3. ADALAT [Concomitant]
     Active Substance: NIFEDIPINE
     Indication: HYPERTENSION
     Dosage: 60 MG, DAILY
     Route: 048
  4. ACETYLSALICYLIC ACID [Concomitant]
     Active Substance: ASPIRIN
     Dosage: UNK
     Route: 065
  5. IMOVANE [Concomitant]
     Active Substance: ZOPICLONE
     Dosage: 5 MG, 1X/DAY AT EVENING
     Route: 048
  6. VIVAL [Concomitant]
     Active Substance: DIAZEPAM
     Indication: RESTLESSNESS
     Dosage: 5MG AS NEEDED ; AS NECESSARY
     Route: 048
  7. FRAGMIN [Concomitant]
     Active Substance: DALTEPARIN SODIUM
     Indication: CEREBRAL INFARCTION
     Dosage: 5000 IU, 2X/DAY
     Route: 058
     Dates: start: 20130821, end: 20131008
  8. ATORVASTATIN [Suspect]
     Active Substance: ATORVASTATIN
     Dosage: 80 MG, DAILY
     Route: 048
     Dates: start: 20130826, end: 20131124
  9. PLAVIX [Suspect]
     Active Substance: CLOPIDOGREL BISULFATE
     Indication: CEREBRAL INFARCTION
     Dosage: 75 MG, DAILY
     Route: 048
     Dates: start: 20130826, end: 20150813
  10. ATORVASTATIN [Suspect]
     Active Substance: ATORVASTATIN
     Indication: HYPERCHOLESTEROLAEMIA
     Dosage: 40 MG, DAILY
     Route: 048
     Dates: start: 20131125, end: 20150813

REACTIONS (11)
  - Lyme disease [Recovering/Resolving]
  - Skin disorder [Recovering/Resolving]
  - Psoriasis [Recovering/Resolving]
  - Pain [Recovered/Resolved]
  - Impaired quality of life [Recovering/Resolving]
  - Pain [Recovering/Resolving]
  - Eczema [Recovering/Resolving]
  - Haematoma [Recovering/Resolving]
  - Rash pruritic [Recovering/Resolving]
  - Myalgia [Recovered/Resolved]
  - Pain in extremity [Recovering/Resolving]

NARRATIVE: CASE EVENT DATE: 20140301
